FAERS Safety Report 5673182-1 (Version None)
Quarter: 2008Q1

REPORT INFORMATION
  Report Type: 
  Country: None (occurrence: None)
  Receive Date: 20080319
  Receipt Date: 20080316
  Transmission Date: 20080703
  Serious: Yes (Other)
  Sender: FDA-Public Use
  Company Number: DE-BRISTOL-MYERS SQUIBB COMPANY-14117238

PATIENT
  Age: 41 Year
  Sex: Male
  Weight: 80 kg

DRUGS (2)
  1. SOLGOL TABS [Suspect]
     Dosage: 24 DOSAGEFORM = 24 TABS
     Route: 048
  2. DIAZEPAM [Suspect]
     Dosage: 9 TABLETS OF DIAZEPAM 5

REACTIONS (1)
  - SUICIDE ATTEMPT [None]
